FAERS Safety Report 16748035 (Version 1)
Quarter: 2019Q3

REPORT INFORMATION
  Report Type: Spontaneous
  Country: CA (occurrence: CA)
  Receive Date: 20190827
  Receipt Date: 20190827
  Transmission Date: 20191005
  Serious: Yes (Other)
  Sender: FDA-Public Use
  Company Number: CA-TEVA-2019-CA-1097391

PATIENT
  Age: 55 Year
  Sex: Female

DRUGS (9)
  1. GABAPENTIN. [Concomitant]
     Active Substance: GABAPENTIN
     Dosage: 300 MILLIGRAM DAILY;
  2. ACETAMINOPHEN/CAFFEINE/CODEINE PHOSPHATE [Concomitant]
     Active Substance: ACETAMINOPHEN\CAFFEINE\CODEINE PHOSPHATE
     Dosage: 2 DOSAGE FORMS DAILY;
     Route: 048
  3. PANTOPRAZOLE [Concomitant]
     Active Substance: PANTOPRAZOLE
     Route: 048
  4. SYNTHROID [Concomitant]
     Active Substance: LEVOTHYROXINE SODIUM
  5. NAPROXEN. [Concomitant]
     Active Substance: NAPROXEN
     Dosage: 1000 MILLIGRAM DAILY;
     Route: 048
  6. FOLINICACID/LEUCOVORINCALCIUM [Concomitant]
     Route: 048
  7. SULFASALAZINE. [Concomitant]
     Active Substance: SULFASALAZINE
  8. METHOTREXATE. [Suspect]
     Active Substance: METHOTREXATE
     Indication: PRODUCT USED FOR UNKNOWN INDICATION
     Route: 065
  9. CODEINE [Concomitant]
     Active Substance: CODEINE

REACTIONS (5)
  - Lower respiratory tract infection [Recovered/Resolved]
  - Psoriatic arthropathy [Recovered/Resolved]
  - Pain [Recovered/Resolved]
  - Sleep deficit [Recovered/Resolved]
  - General physical health deterioration [Recovered/Resolved]
